FAERS Safety Report 5482746-X (Version None)
Quarter: 2007Q4

REPORT INFORMATION
  Report Type: 
  Country: None (occurrence: None)
  Receive Date: 20071011
  Receipt Date: 20071001
  Transmission Date: 20080405
  Serious: Yes (Other)
  Sender: FDA-Public Use
  Company Number: US-PFIZER INC-2007075728

PATIENT
  Sex: Female
  Weight: 67.7 kg

DRUGS (2)
  1. LIPITOR [Suspect]
     Indication: CEREBROVASCULAR ACCIDENT
     Dates: start: 20070101, end: 20070101
  2. COZAAR [Concomitant]

REACTIONS (5)
  - AMNESIA [None]
  - COGNITIVE DISORDER [None]
  - DIZZINESS [None]
  - IMPAIRED WORK ABILITY [None]
  - LETHARGY [None]
